FAERS Safety Report 8021739-5 (Version None)
Quarter: 2012Q1

REPORT INFORMATION
  Report Type: 
  Country: None (occurrence: None)
  Receive Date: 20120104
  Receipt Date: 20120103
  Transmission Date: 20120608
  Serious: Yes (Hospitalization)
  Sender: FDA-Public Use
  Company Number: PHHY2011NL109464

PATIENT
  Sex: Male
  Weight: 89 kg

DRUGS (10)
  1. BUMETANIDE [Concomitant]
     Dosage: 2.5 MG, 2DD
  2. CORDARONE [Concomitant]
     Dosage: 200 MG, 1DD
  3. TOBI [Suspect]
     Indication: PSEUDOMONAS INFECTION
     Dosage: 28 MG, UNK
     Dates: end: 20111124
  4. MARCUMAR [Concomitant]
  5. SPIRONOLACTONE [Concomitant]
     Dosage: 25 MG, 2DD
  6. SYMBICORT [Concomitant]
     Dosage: 2DD1
  7. CLONAZEPAM [Concomitant]
     Dosage: 0.5 MG, 1DD
  8. CARVEDILOL [Concomitant]
  9. LIPITOR [Concomitant]
     Dosage: 20 MG, 1DD
  10. SPIRIVA [Concomitant]
     Dosage: 18 MG, 1DD

REACTIONS (4)
  - CARDIAC FAILURE [None]
  - DYSPNOEA [None]
  - COUGH [None]
  - PNEUMONIA [None]
